FAERS Safety Report 7305266-6 (Version None)
Quarter: 2011Q1

REPORT INFORMATION
  Report Type: 
  Country: None (occurrence: None)
  Receive Date: 20110222
  Receipt Date: 20110215
  Transmission Date: 20110831
  Serious: Yes (Hospitalization)
  Sender: FDA-Public Use
  Company Number: US-PFIZER INC-2011033736

PATIENT
  Age: 19 Year
  Sex: Female

DRUGS (3)
  1. ZONEGRAN [Concomitant]
     Indication: EPILEPSY
     Dosage: UNK
  2. XANAX [Concomitant]
     Dosage: UNK
     Route: 048
  3. DEPO-PROVERA [Suspect]
     Dosage: UNK
     Route: 030
     Dates: start: 20070101

REACTIONS (2)
  - ARTHROPATHY [None]
  - AMENORRHOEA [None]
